FAERS Safety Report 10026007 (Version 1)
Quarter: 2014Q1

REPORT INFORMATION
  Report Type: Spontaneous
  Country: PT (occurrence: None)
  Receive Date: 20140318
  Receipt Date: 20140318
  Transmission Date: 20141002
  Serious: Yes (Hospitalization)
  Sender: FDA-Public Use
  Company Number: 2014P1002040

PATIENT
  Age: 30 Year
  Sex: Female

DRUGS (2)
  1. HYDROCORTISONE [Suspect]
     Indication: ADDISON^S DISEASE
     Route: 042
  2. PREDNISONE [Concomitant]

REACTIONS (3)
  - Adrenocortical insufficiency acute [None]
  - Haemodynamic instability [None]
  - Maternal exposure during delivery [None]
